FAERS Safety Report 14204536 (Version 4)
Quarter: 2018Q3

REPORT INFORMATION
  Report Type: Spontaneous
  Country: JP (occurrence: JP)
  Receive Date: 20171120
  Receipt Date: 20180828
  Transmission Date: 20181010
  Serious: Yes (Death, Hospitalization, Other)
  Sender: FDA-Public Use
  Company Number: JP-BIOGEN-2017BI00478704

PATIENT
  Age: 45 Year
  Sex: Male
  Weight: 70 kg

DRUGS (7)
  1. METHYLPREDNISOLONE SODIUM SUCCINATE. [Concomitant]
     Active Substance: METHYLPREDNISOLONE SODIUM SUCCINATE
     Route: 041
     Dates: start: 20171021, end: 20171023
  2. METHYLPREDNISOLONE SODIUM SUCCINATE. [Concomitant]
     Active Substance: METHYLPREDNISOLONE SODIUM SUCCINATE
     Route: 041
     Dates: start: 20171107, end: 20171109
  3. PRODIF [Concomitant]
     Active Substance: FOSFLUCONAZOLE
     Route: 042
  4. PREDONINE [Concomitant]
     Active Substance: PREDNISOLONE
     Route: 048
     Dates: start: 20131228
  5. NAIXAN [Concomitant]
     Active Substance: NAPROXEN SODIUM
     Route: 065
  6. TYSABRI [Suspect]
     Active Substance: NATALIZUMAB
     Indication: MULTIPLE SCLEROSIS
     Route: 041
     Dates: start: 20171018, end: 201710
  7. ZANTAC [Concomitant]
     Active Substance: RANITIDINE HYDROCHLORIDE
     Route: 048
     Dates: start: 20131228

REACTIONS (9)
  - White blood cell count abnormal [Unknown]
  - Respiratory failure [Unknown]
  - Cardiogenic shock [Fatal]
  - Pyrexia [Fatal]
  - Multiple organ dysfunction syndrome [Fatal]
  - Coma [Unknown]
  - Platelet count decreased [Unknown]
  - Multiple sclerosis [Fatal]
  - Hypersensitivity [Unknown]

NARRATIVE: CASE EVENT DATE: 20171019
